FAERS Safety Report 8643635 (Version 5)
Quarter: 2014Q2

REPORT INFORMATION
  Report Type: Spontaneous
  Country: FR (occurrence: FR)
  Receive Date: 20120629
  Receipt Date: 20140414
  Transmission Date: 20141212
  Serious: Yes (Other)
  Sender: FDA-Public Use
  Company Number: FR-PFIZER INC-2012154782

PATIENT
  Age: 60 Year
  Sex: Female

DRUGS (20)
  1. ARGANOVA [Suspect]
     Indication: HEPARIN-INDUCED THROMBOCYTOPENIA
     Dosage: 50 MG, DAILY
     Route: 042
     Dates: start: 20120601, end: 20120605
  2. SANDIMMUN [Interacting]
     Indication: HEART TRANSPLANT
     Dosage: 25 MG, 2X/DAY
     Route: 048
  3. SANDIMMUN [Interacting]
     Indication: IMMUNOSUPPRESSANT DRUG THERAPY
     Dosage: 100 MG, 1X/DAY
     Route: 048
     Dates: start: 20120603, end: 20120603
  4. SANDIMMUN [Interacting]
     Dosage: 50 MG, 1X/DAY
     Route: 048
  5. SANDIMMUN [Interacting]
     Dosage: 200 MG, 1X/DAY
     Route: 048
     Dates: start: 20120605, end: 20120605
  6. SANDIMMUN [Interacting]
     Dosage: 75 MG, 1X/DAY
     Route: 048
     Dates: start: 20120512, end: 20120602
  7. SANDIMMUN [Interacting]
     Dosage: 150 MG, 1X/DAY
     Route: 048
     Dates: start: 20120604, end: 20120604
  8. CELLCEPT [Concomitant]
     Indication: IMMUNOSUPPRESSANT DRUG THERAPY
     Dosage: 2 G, DAILY
     Route: 042
  9. CELLCEPT [Concomitant]
     Dosage: 1000 MG, 2X/DAY
  10. SOLUPRED [Concomitant]
     Dosage: 5 MG, 1X/DAY (0.1 MG/KG A DAY)
  11. ACETAMINOPHEN [Concomitant]
     Indication: POSTOPERATIVE CARE
     Dosage: 1000 MG, 4X/DAY ON DEMAND
  12. ONDANSETRON [Concomitant]
     Indication: POSTOPERATIVE CARE
     Dosage: 12 MG, 1X/DAY  ON DEMAND
  13. ESOMEPRAZOLE [Concomitant]
     Indication: POSTOPERATIVE CARE
     Dosage: 40 MG, 1X/DAY
  14. MIDAZOLAM [Concomitant]
     Indication: ANAESTHESIA
     Dosage: UNK
  15. SUFENTANIL CITRATE [Concomitant]
     Indication: ANAESTHESIA
     Dosage: UNK
  16. CEFTAZIDIME [Concomitant]
     Indication: ANTIBIOTIC THERAPY
     Dosage: 2000 MG, 1X/DAY
     Route: 042
  17. LINEZOLID [Concomitant]
     Indication: ANTIBIOTIC THERAPY
     Dosage: 600 MG, 2X/DAY
     Route: 042
  18. GANCICLOVIR [Concomitant]
     Indication: ANTIVIRAL TREATMENT
     Dosage: 125 MG, 2X/DAY
     Route: 042
  19. HEPARIN [Concomitant]
     Indication: ANTICOAGULANT THERAPY
     Dosage: UNK
  20. METHYLPREDNISOLONE [Concomitant]
     Indication: IMMUNOSUPPRESSANT DRUG THERAPY
     Dosage: 40 MG, DAILY
     Route: 042

REACTIONS (2)
  - Drug level decreased [Recovered/Resolved]
  - Drug interaction [Recovered/Resolved]
